APPROVED DRUG PRODUCT: FLURAZEPAM HYDROCHLORIDE
Active Ingredient: FLURAZEPAM HYDROCHLORIDE
Strength: 30MG
Dosage Form/Route: CAPSULE;ORAL
Application: A071717 | Product #001
Applicant: RISING PHARMA HOLDINGS INC
Approved: Jul 31, 1991 | RLD: No | RS: No | Type: DISCN